FAERS Safety Report 8194346-1 (Version None)
Quarter: 2012Q1

REPORT INFORMATION
  Report Type: 
  Country: None (occurrence: None)
  Receive Date: 20120308
  Receipt Date: 20120216
  Transmission Date: 20120608
  Serious: Yes (Death, Other)
  Sender: FDA-Public Use
  Company Number: US-PFIZER INC-US-WYE-H02049608

PATIENT
  Age: 49 Year
  Sex: Male

DRUGS (10)
  1. LISINOPRIL [Suspect]
     Dosage: OVERDOSE AMOUNT UNSPECIFIED
     Route: 048
     Dates: start: 20060101, end: 20060101
  2. IMIPRAMINE [Suspect]
     Dosage: OVERDOSE AMOUNT UNSPECIFIED
     Route: 048
     Dates: start: 20060101, end: 20060101
  3. EFFEXOR [Suspect]
     Dosage: OVERDOSE AMOUNT UNSPECIFIED
     Route: 048
     Dates: start: 20060101, end: 20060101
  4. AMLODIPINE [Suspect]
     Dosage: OVERDOSE AMOUNT UNSPECIFIED
     Route: 048
     Dates: start: 20060101, end: 20060101
  5. HYDROCHLOROTHIAZIDE [Suspect]
     Dosage: OVERDOSE AMOUNT UNSPECIFIED
     Route: 048
     Dates: start: 20060101, end: 20060101
  6. ACETYLSALICYLIC ACID SRT [Suspect]
     Dosage: OVERDOSE AMOUNT UNSPECIFIED
     Route: 048
     Dates: start: 20060101, end: 20060101
  7. DIAZEPAM [Suspect]
     Dosage: OVERDOSE AMOUNT UNSPECIFIED
     Route: 048
     Dates: start: 20060101, end: 20060101
  8. GABAPENTIN [Suspect]
     Dosage: OVERDOSE AMOUNT UNSPECIFIED
     Route: 048
     Dates: start: 20060101, end: 20060101
  9. SITAGLIPTIN [Suspect]
  10. IBUPROFEN [Suspect]

REACTIONS (2)
  - COMPLETED SUICIDE [None]
  - INTENTIONAL OVERDOSE [None]
